FAERS Safety Report 6742560-1 (Version None)
Quarter: 2010Q2

REPORT INFORMATION
  Report Type: 
  Country: None (occurrence: None)
  Receive Date: 20100526
  Receipt Date: 20100518
  Transmission Date: 20101027
  Serious: Yes (Hospitalization)
  Sender: FDA-Public Use
  Company Number: US-ABBOTT-10P-163-0639243-00

PATIENT
  Sex: Female
  Weight: 113.95 kg

DRUGS (6)
  1. HUMIRA [Suspect]
     Indication: PSORIATIC ARTHROPATHY
     Dates: start: 20090101
  2. TAMIFLU [Suspect]
     Indication: H1N1 INFLUENZA
     Dates: start: 20091101, end: 20091101
  3. VYTORIN [Concomitant]
     Indication: BLOOD CHOLESTEROL INCREASED
  4. ASPIRIN [Concomitant]
     Indication: ROUTINE HEALTH MAINTENANCE
  5. LEVOTHYROXINE SODIUM [Concomitant]
     Indication: HYPOTHYROIDISM
  6. TOPAMAX [Concomitant]
     Indication: CONVULSION

REACTIONS (7)
  - DECREASED APPETITE [None]
  - DRUG HYPERSENSITIVITY [None]
  - H1N1 INFLUENZA [None]
  - PNEUMONIA [None]
  - UNRESPONSIVE TO STIMULI [None]
  - VOMITING [None]
  - WHEEZING [None]
